FAERS Safety Report 6493361-3 (Version None)
Quarter: 2009Q4

REPORT INFORMATION
  Report Type: 
  Country: None (occurrence: None)
  Receive Date: 20091214
  Receipt Date: 20091208
  Transmission Date: 20100525
  Serious: Yes (Hospitalization)
  Sender: FDA-Public Use
  Company Number: DE-JNJFOC-20091201879

PATIENT
  Age: 39 Year
  Sex: Male
  Weight: 92.5 kg

DRUGS (3)
  1. REMICADE [Suspect]
     Indication: ANKYLOSING SPONDYLITIS
     Dosage: EVERY 5-6 WEEKS
     Route: 042
  2. METHOTREXAT [Suspect]
     Indication: ANKYLOSING SPONDYLITIS
  3. DECORTIN [Concomitant]
     Indication: ANKYLOSING SPONDYLITIS

REACTIONS (2)
  - HEPATITIS [None]
  - LEGIONELLA INFECTION [None]
